FAERS Safety Report 4386966-7 (Version None)
Quarter: 2004Q2

REPORT INFORMATION
  Report Type: 
  Country: None (occurrence: None)
  Receive Date: 20040630
  Receipt Date: 20040618
  Transmission Date: 20050107
  Serious: Yes (Other)
  Sender: FDA-Public Use
  Company Number: 200411974EU

PATIENT
  Age: 70 Year
  Sex: Male

DRUGS (2)
  1. LANTUS [Suspect]
     Indication: DRUG USE FOR UNKNOWN INDICATION
  2. ALL OTHER THERAPEUTIC PRODUCTS [Concomitant]
     Indication: ASTHMA

REACTIONS (3)
  - ASTHMA [None]
  - CONDITION AGGRAVATED [None]
  - CONJUNCTIVITIS [None]
